FAERS Safety Report 13704527 (Version 4)
Quarter: 2018Q3

REPORT INFORMATION
  Report Type: Report from Study
  Country: US (occurrence: US)
  Receive Date: 20170630
  Receipt Date: 20180724
  Transmission Date: 20181010
  Serious: Yes (Other)
  Sender: FDA-Public Use
  Company Number: US-ASTRAZENECA-2017SE65372

PATIENT
  Age: 51 Year
  Sex: Female

DRUGS (23)
  1. FASLODEX [Suspect]
     Active Substance: FULVESTRANT
     Indication: BREAST CANCER FEMALE
     Dosage: UNKNOWN
     Route: 030
  2. EXEMESTANE. [Concomitant]
     Active Substance: EXEMESTANE
  3. CAPECITABINE. [Concomitant]
     Active Substance: CAPECITABINE
     Dates: start: 201605
  4. XGEVA [Concomitant]
     Active Substance: DENOSUMAB
     Dates: start: 201612
  5. ADRIAMYCIN [Concomitant]
     Active Substance: DOXORUBICIN HYDROCHLORIDE
  6. TAXOL [Concomitant]
     Active Substance: PACLITAXEL
     Dates: start: 201409
  7. FULVESTRANT. [Suspect]
     Active Substance: FULVESTRANT
     Indication: METASTASES TO BONE
     Dosage: UNKNOWN
     Route: 030
  8. LYNPARZA [Suspect]
     Active Substance: OLAPARIB
     Indication: BREAST CANCER FEMALE
     Route: 048
     Dates: start: 20180617
  9. IBRANCE [Suspect]
     Active Substance: PALBOCICLIB
     Indication: BREAST CANCER FEMALE
     Route: 048
  10. DENOSUMAB [Concomitant]
     Active Substance: DENOSUMAB
  11. LETROZOLE. [Concomitant]
     Active Substance: LETROZOLE
     Dates: start: 201511
  12. ERGOCALCIFEROL. [Concomitant]
     Active Substance: ERGOCALCIFEROL
     Dates: start: 201612
  13. ANASTROZOLE. [Suspect]
     Active Substance: ANASTROZOLE
     Route: 048
  14. LYNPARZA [Suspect]
     Active Substance: OLAPARIB
     Indication: BREAST CANCER FEMALE
     Dosage: UNKNOWN
     Route: 048
  15. EVEROLIMUS. [Concomitant]
     Active Substance: EVEROLIMUS
     Dates: start: 201612
  16. ASPIRIN. [Concomitant]
     Active Substance: ASPIRIN
     Dates: start: 201612
  17. TAMOXIFEN [Suspect]
     Active Substance: TAMOXIFEN
     Dosage: UNKNOWN
     Route: 048
  18. TAMOXIFEN [Suspect]
     Active Substance: TAMOXIFEN
     Route: 048
     Dates: start: 201404
  19. FASLODEX [Suspect]
     Active Substance: FULVESTRANT
     Indication: METASTASES TO BONE
     Dosage: UNKNOWN
     Route: 030
  20. LYNPARZA [Suspect]
     Active Substance: OLAPARIB
     Indication: BREAST CANCER FEMALE
     Dosage: UNKNOWN
     Route: 048
  21. CYTOXAN [Concomitant]
     Active Substance: CYCLOPHOSPHAMIDE
  22. PRILOSEC OTC [Suspect]
     Active Substance: OMEPRAZOLE MAGNESIUM
     Route: 048
  23. CARBOPLATIN. [Concomitant]
     Active Substance: CARBOPLATIN
     Dates: start: 201409

REACTIONS (7)
  - Drug ineffective [Unknown]
  - Malignant neoplasm progression [Unknown]
  - Metastases to bone [Unknown]
  - Nausea [Recovering/Resolving]
  - Metastases to lymph nodes [Unknown]
  - Red blood cell count decreased [Unknown]
  - Metastases to liver [Unknown]

NARRATIVE: CASE EVENT DATE: 2011
